FAERS Safety Report 13904936 (Version 1)
Quarter: 2017Q3

REPORT INFORMATION
  Report Type: Spontaneous
  Country: US (occurrence: US)
  Receive Date: 20170825
  Receipt Date: 20170825
  Transmission Date: 20171127
  Serious: No
  Sender: FDA-Public Use
  Company Number: PHHY2017US125426

PATIENT
  Sex: Female

DRUGS (1)
  1. SYSTANE ULTRA [Suspect]
     Active Substance: POLYETHYLENE GLYCOL 400\PROPYLENE GLYCOL
     Indication: PRODUCT USED FOR UNKNOWN INDICATION
     Dosage: UNK
     Route: 047
     Dates: start: 20170810, end: 20170824

REACTIONS (3)
  - Eye irritation [Not Recovered/Not Resolved]
  - Expired product administered [Not Recovered/Not Resolved]
  - Eyelid margin crusting [Not Recovered/Not Resolved]

NARRATIVE: CASE EVENT DATE: 20170817
